FAERS Safety Report 9305508 (Version 2)
Quarter: 2013Q2

REPORT INFORMATION
  Report Type: Spontaneous
  Country: US (occurrence: US)
  Receive Date: 20130523
  Receipt Date: 20130604
  Transmission Date: 20140414
  Serious: Yes (Other)
  Sender: FDA-Public Use
  Company Number: US-AMGEN-USASP2013035582

PATIENT
  Age: 71 Year
  Sex: Female

DRUGS (1)
  1. PROLIA [Suspect]
     Indication: OSTEOPOROSIS POSTMENOPAUSAL
     Dosage: UNK
     Dates: start: 20121119

REACTIONS (7)
  - Walking aid user [Unknown]
  - Dysstasia [Unknown]
  - Gait disturbance [Unknown]
  - Muscular weakness [Unknown]
  - Dyspnoea [Unknown]
  - Oedema peripheral [Unknown]
  - Pain in extremity [Unknown]
